FAERS Safety Report 9579500 (Version 1)
Quarter: 2013Q4

REPORT INFORMATION
  Report Type: Spontaneous
  Country: US (occurrence: US)
  Receive Date: 20131001
  Receipt Date: 20131001
  Transmission Date: 20140711
  Serious: No
  Sender: FDA-Public Use
  Company Number: US-AMGEN-USASP2013028309

PATIENT
  Age: 74 Year
  Sex: Female
  Weight: 67.57 kg

DRUGS (4)
  1. PROCRIT [Suspect]
     Indication: MYELOID LEUKAEMIA
     Dosage: UNK UNK, QWK
     Route: 058
     Dates: start: 20130401
  2. CITALOPRAM [Concomitant]
     Indication: ANXIETY
     Dosage: 10 MG, QD
     Route: 048
     Dates: start: 2003
  3. AMBIEN [Concomitant]
     Indication: INSOMNIA
     Dosage: 0.25 MG, ONCE NIGHTLY
     Route: 048
     Dates: start: 2011
  4. VIDAZA [Concomitant]
     Indication: MYELOID LEUKAEMIA
     Dosage: UNK

REACTIONS (2)
  - Haemoglobin abnormal [Not Recovered/Not Resolved]
  - Asthenia [Not Recovered/Not Resolved]
